FAERS Safety Report 15550758 (Version 2)
Quarter: 2018Q4

REPORT INFORMATION
  Report Type: Spontaneous
  Country: JP (occurrence: JP)
  Receive Date: 20181025
  Receipt Date: 20181118
  Transmission Date: 20190205
  Serious: Yes (Other)
  Sender: FDA-Public Use
  Company Number: JP-UCBSA-2018047209

PATIENT
  Age: 84 Year
  Sex: Male

DRUGS (3)
  1. CARCOPA [Suspect]
     Active Substance: CARBIDOPA\LEVODOPA
     Indication: PRODUCT USED FOR UNKNOWN INDICATION
     Route: 048
  2. DOPASTON [Concomitant]
     Active Substance: LEVODOPA
     Indication: PARKINSON^S DISEASE
  3. E KEPPRA [Suspect]
     Active Substance: LEVETIRACETAM
     Indication: EPILEPSY
     Dosage: UNK
     Route: 041

REACTIONS (1)
  - Duodenal ulcer [Recovered/Resolved]
